FAERS Safety Report 7681824-4 (Version None)
Quarter: 2011Q3

REPORT INFORMATION
  Report Type: 
  Country: None (occurrence: None)
  Receive Date: 20110813
  Receipt Date: 20110804
  Transmission Date: 20111222
  Serious: Yes (Death, Hospitalization)
  Sender: FDA-Public Use
  Company Number: JP-AMGEN-JPNCT2010011103

PATIENT
  Age: 72 Year
  Sex: Male
  Weight: 54 kg

DRUGS (21)
  1. PANITUMUMAB [Suspect]
     Dosage: 1.8 MG/KG, Q2WK
     Route: 041
     Dates: start: 20101221
  2. RINDERON-VG [Concomitant]
     Route: 062
  3. OXALIPLATIN [Suspect]
     Indication: COLORECTAL CANCER
     Route: 041
     Dates: start: 20101021, end: 20101202
  4. ANTIHISTAMINES [Concomitant]
     Indication: PROPHYLAXIS
     Route: 065
  5. HIRUDOID [Concomitant]
     Route: 062
  6. OXALIPLATIN [Suspect]
     Route: 041
     Dates: start: 20101221, end: 20110407
  7. FLUOROURACIL [Suspect]
     Route: 040
     Dates: start: 20101021, end: 20101202
  8. FLUOROURACIL [Suspect]
     Route: 041
     Dates: start: 20101021, end: 20101202
  9. ALMETA [Concomitant]
     Route: 062
     Dates: start: 20101020, end: 20110526
  10. LEUCOVORIN CALCIUM [Suspect]
     Route: 041
     Dates: start: 20101021, end: 20101202
  11. LEUCOVORIN CALCIUM [Suspect]
     Route: 041
     Dates: start: 20101221, end: 20110526
  12. MYSER [Concomitant]
     Route: 062
     Dates: start: 20101020, end: 20110526
  13. FLUOROURACIL [Suspect]
     Route: 041
     Dates: start: 20101021
  14. MYSER [Concomitant]
     Route: 062
  15. FLUOROURACIL [Suspect]
     Indication: COLORECTAL CANCER
     Route: 040
     Dates: start: 20101021
  16. FLUOROURACIL [Suspect]
     Route: 040
     Dates: start: 20101221, end: 20110526
  17. FLUOROURACIL [Suspect]
     Route: 041
     Dates: start: 20101221, end: 20110526
  18. LEUCOVORIN CALCIUM [Suspect]
     Indication: COLORECTAL CANCER
     Route: 041
     Dates: start: 20101021
  19. CORTICOSTEROIDS [Concomitant]
     Indication: PROPHYLAXIS
  20. ALMETA [Concomitant]
     Route: 062
  21. PANITUMUMAB [Suspect]
     Indication: COLORECTAL CANCER
     Dosage: 6 MG/KG, Q2WK
     Route: 041
     Dates: start: 20101021, end: 20101202

REACTIONS (4)
  - DERMATITIS ACNEIFORM [None]
  - INTERSTITIAL LUNG DISEASE [None]
  - STOMATITIS [None]
  - DUODENAL ULCER [None]
